FAERS Safety Report 16077544 (Version 1)
Quarter: 2019Q1

REPORT INFORMATION
  Report Type: Spontaneous
  Country: HU (occurrence: HU)
  Receive Date: 20190315
  Receipt Date: 20190315
  Transmission Date: 20190418
  Serious: Yes (Hospitalization)
  Sender: FDA-Public Use
  Company Number: HU-ELI_LILLY_AND_COMPANY-HU201903005880

PATIENT
  Age: 45 Year
  Sex: Female

DRUGS (4)
  1. CLONAZEPAM. [Concomitant]
     Active Substance: CLONAZEPAM
     Indication: SCHIZOPHRENIFORM DISORDER
     Dosage: UNK UNK, UNKNOWN
     Route: 065
  2. ARIPIPRAZOL [Concomitant]
     Active Substance: ARIPIPRAZOLE
     Indication: SCHIZOPHRENIFORM DISORDER
     Dosage: UNK UNK, UNKNOWN
     Route: 065
  3. ZYPREXA [Suspect]
     Active Substance: OLANZAPINE
     Indication: SCHIZOPHRENIFORM DISORDER
     Dosage: UNK UNK, UNKNOWN
     Route: 065
     Dates: start: 1996
  4. CITALOPRAM [Concomitant]
     Active Substance: CITALOPRAM HYDROBROMIDE
     Indication: SCHIZOPHRENIFORM DISORDER
     Dosage: UNK UNK, UNKNOWN
     Route: 065

REACTIONS (13)
  - Hallucination, auditory [Recovered/Resolved]
  - Logorrhoea [Recovered/Resolved]
  - Insomnia [Recovered/Resolved]
  - Restlessness [Recovered/Resolved]
  - Emotional disorder [Not Recovered/Not Resolved]
  - Feeling abnormal [Recovered/Resolved]
  - Feeling guilty [Recovered/Resolved]
  - Blood cholesterol increased [Recovered/Resolved]
  - Anxiety [Not Recovered/Not Resolved]
  - Depressed mood [Recovered/Resolved]
  - Paranoia [Recovered/Resolved]
  - Product dose omission [Unknown]
  - Schizophrenia [Recovered/Resolved]

NARRATIVE: CASE EVENT DATE: 201509
